FAERS Safety Report 9012311 (Version 1)
Quarter: 2013Q1

REPORT INFORMATION
  Report Type: Report from Study
  Country: DK (occurrence: DK)
  Receive Date: 20130114
  Receipt Date: 20130114
  Transmission Date: 20140127
  Serious: Yes (Hospitalization)
  Sender: FDA-Public Use
  Company Number: DK-BAXTER-2013BAX000481

PATIENT
  Age: 75 Year
  Sex: Female
  Weight: 65 kg

DRUGS (20)
  1. SENDOXAN [Suspect]
     Indication: BREAST CANCER
     Route: 042
     Dates: start: 20121114
  2. SENDOXAN [Suspect]
     Route: 042
     Dates: start: 20121205
  3. SENDOXAN [Suspect]
     Route: 042
  4. EPIRUBICIN [Suspect]
     Indication: BREAST CANCER
     Route: 042
     Dates: start: 20121114
  5. EPIRUBICIN [Suspect]
     Route: 042
     Dates: start: 20121205
  6. EPIRUBICIN [Suspect]
     Route: 042
  7. FLUOROURACIL [Suspect]
     Indication: BREAST CANCER
     Route: 042
     Dates: start: 20121114
  8. FLUOROURACIL [Suspect]
     Route: 042
     Dates: start: 20121205
  9. FLUOROURACIL [Suspect]
     Route: 042
  10. PEGFILGRASTIM [Suspect]
     Indication: PRODUCT USED FOR UNKNOWN INDICATION
     Route: 065
  11. PREDNISOLON [Concomitant]
     Indication: PRODUCT USED FOR UNKNOWN INDICATION
     Route: 065
     Dates: start: 20121114
  12. PREDNISOLON [Concomitant]
     Route: 065
  13. ONDANSETRON [Concomitant]
     Indication: PRODUCT USED FOR UNKNOWN INDICATION
     Route: 065
     Dates: start: 20121114
  14. ONDANSETRON [Concomitant]
     Route: 065
  15. EMEND [Concomitant]
     Indication: PRODUCT USED FOR UNKNOWN INDICATION
     Route: 065
     Dates: start: 20121114
  16. EMEND [Concomitant]
     Route: 065
  17. EMPERAL [Concomitant]
     Indication: PRODUCT USED FOR UNKNOWN INDICATION
     Route: 065
     Dates: start: 20121114
  18. EMPERAL [Concomitant]
     Route: 065
     Dates: start: 20121114
  19. MULTIVITAMIN [Concomitant]
     Indication: PRODUCT USED FOR UNKNOWN INDICATION
     Route: 065
  20. IRON [Concomitant]
     Indication: PRODUCT USED FOR UNKNOWN INDICATION
     Route: 065

REACTIONS (3)
  - Febrile neutropenia [Recovered/Resolved]
  - Pyrexia [Recovered/Resolved]
  - Fatigue [Recovered/Resolved]
